FAERS Safety Report 9881206 (Version 1)
Quarter: 2014Q1

REPORT INFORMATION
  Report Type: Spontaneous
  Country: ES (occurrence: ES)
  Receive Date: 20140207
  Receipt Date: 20140207
  Transmission Date: 20141002
  Serious: Yes (Other)
  Sender: FDA-Public Use
  Company Number: PHHY2014ES014227

PATIENT
  Sex: 0
  Weight: 1.9 kg

DRUGS (6)
  1. CICLOSPORIN [Suspect]
     Dosage: UNK
     Route: 064
  2. AZATHIOPRINE [Suspect]
     Dosage: UNK
     Route: 064
  3. PREDNISONE [Suspect]
     Dosage: UNK
     Route: 064
  4. FERROUS SULPHATE [Suspect]
     Dosage: UNK
     Route: 064
  5. LABETALOL [Suspect]
     Route: 064
  6. HYDRALAZINE [Suspect]
     Route: 064

REACTIONS (5)
  - Low birth weight baby [Unknown]
  - Premature baby [Unknown]
  - Foetal growth restriction [Unknown]
  - Small for dates baby [Unknown]
  - Foetal exposure during pregnancy [Unknown]
